FAERS Safety Report 23594478 (Version 1)
Quarter: 2024Q1

REPORT INFORMATION
  Report Type: Spontaneous
  Country: ES (occurrence: ES)
  Receive Date: 20240305
  Receipt Date: 20240305
  Transmission Date: 20240410
  Serious: Yes (Hospitalization, Other)
  Sender: FDA-Public Use
  Company Number: ES-PFIZER INC-202400043897

PATIENT
  Age: 71 Year
  Sex: Female

DRUGS (5)
  1. OXALIPLATIN [Suspect]
     Active Substance: OXALIPLATIN
     Indication: Colorectal cancer metastatic
     Dosage: 85 MG/M2, (CYCLIC)
     Route: 042
  2. ARFOLITIXORIN [Suspect]
     Active Substance: ARFOLITIXORIN
     Indication: Colorectal cancer metastatic
     Dosage: 120 MILLIGRAM/SQ. METER,(RECEIVED TWO RAPID INTRAVENOUS BOLUS DOSES OF 60 MG/M2, CYCLE)
     Route: 042
  3. BEVACIZUMAB [Suspect]
     Active Substance: BEVACIZUMAB
     Indication: Colorectal cancer metastatic
     Dosage: 5 MILLIGRAM/KILOGRAM(CYCLIC)
     Route: 042
  4. FLUOROURACIL [Suspect]
     Active Substance: FLUOROURACIL
     Indication: Colorectal cancer metastatic
     Dosage: 2400 MILLIGRAM/SQ. METER(CONTINUOUS INTRAVENOUS INFUSION OVER 46 HOURS, CYCLIC)
     Route: 042
  5. FLUOROURACIL [Suspect]
     Active Substance: FLUOROURACIL
     Dosage: 400 MILLIGRAM/SQ. METER(OVER 2-4 MINUTES , CYCLIC )
     Route: 042

REACTIONS (2)
  - Acute kidney injury [Recovered/Resolved]
  - Haemolytic anaemia [Recovered/Resolved]

NARRATIVE: CASE EVENT DATE: 20210312
